FAERS Safety Report 18435021 (Version 1)
Quarter: 2020Q4

REPORT INFORMATION
  Report Type: Spontaneous
  Country: DK (occurrence: DK)
  Receive Date: 20201028
  Receipt Date: 20201028
  Transmission Date: 20210114
  Serious: Yes (Hospitalization, Other)
  Sender: FDA-Public Use
  Company Number: DK-AUROBINDO-AUR-APL-2020-054027

PATIENT
  Age: 68 Year
  Sex: Female
  Weight: 65.5 kg

DRUGS (2)
  1. ALENDRONIC ACID 70 MG TABLETS [Suspect]
     Active Substance: ALENDRONIC ACID
     Indication: OSTEOPOROSIS
     Dosage: 70 MILLIGRAM, EVERY WEEK
     Route: 048
     Dates: start: 20170516, end: 20201012
  2. HYDROCORTISONE. [Concomitant]
     Active Substance: HYDROCORTISONE
     Indication: HYPOPITUITARISM
     Dosage: DOSAGE: 1/2 TBL. MORNING, 1/4 TBL. MIDDAG,1/4 TBL. NIGHT.
     Route: 048
     Dates: start: 2000

REACTIONS (1)
  - Femur fracture [Not Recovered/Not Resolved]

NARRATIVE: CASE EVENT DATE: 20201011
